FAERS Safety Report 9845731 (Version 1)
Quarter: 2014Q1

REPORT INFORMATION
  Report Type: Spontaneous
  Country: US (occurrence: US)
  Receive Date: 20140127
  Receipt Date: 20140127
  Transmission Date: 20141002
  Serious: No
  Sender: FDA-Public Use
  Company Number: US-PFIZER INC-2014024667

PATIENT
  Age: 51 Year
  Sex: Female
  Weight: 113 kg

DRUGS (6)
  1. LYRICA [Suspect]
     Indication: NEUROPATHY PERIPHERAL
     Dosage: 50 MG, 3X/DAY
     Dates: start: 200901
  2. LYRICA [Suspect]
     Indication: FIBROMYALGIA
     Dosage: 150 MG, 3X/DAY
  3. LYRICA [Suspect]
     Indication: BROWN-SEQUARD SYNDROME
  4. CELEBREX [Concomitant]
     Dosage: 200 MG, DAILY
  5. ZOLOFT [Concomitant]
     Dosage: 100 MG, DAILY
  6. ZANAFLEX [Concomitant]
     Indication: MUSCLE RELAXANT THERAPY
     Dosage: UNK(2MG TWO TIMES A DAY AND 8MG AT BED TIME),

REACTIONS (3)
  - Vision blurred [Unknown]
  - Weight increased [Unknown]
  - Disturbance in attention [Unknown]
